FAERS Safety Report 9645046 (Version 5)
Quarter: 2014Q1

REPORT INFORMATION
  Report Type: Spontaneous
  Country: FR (occurrence: FR)
  Receive Date: 20131025
  Receipt Date: 20140225
  Transmission Date: 20141002
  Serious: Yes (Hospitalization)
  Sender: FDA-Public Use
  Company Number: FR-ABBVIE-13P-056-1159956-00

PATIENT
  Age: 33 Year
  Sex: Female
  Weight: 42 kg

DRUGS (2)
  1. HUMIRA [Suspect]
     Indication: PRODUCT USED FOR UNKNOWN INDICATION
     Route: 058
     Dates: end: 20130919
  2. CACIT VITAMINE D3 (COLECALCIFEROL, CALCIUM CARBONATE) [Concomitant]
     Dosage: LONG TERM
     Route: 048

REACTIONS (12)
  - Dyskinesia [Unknown]
  - Musculoskeletal stiffness [Unknown]
  - Cerebrovascular accident [Unknown]
  - Musculoskeletal stiffness [Not Recovered/Not Resolved]
  - Fall [Unknown]
  - Dysaesthesia [Not Recovered/Not Resolved]
  - Dysarthria [Not Recovered/Not Resolved]
  - Myoclonus [Not Recovered/Not Resolved]
  - Crohn^s disease [Unknown]
  - Hypokalaemia [Unknown]
  - Hyponatraemia [Unknown]
  - Sensory loss [Unknown]
